FAERS Safety Report 9100410 (Version 3)
Quarter: 2013Q1

REPORT INFORMATION
  Report Type: Spontaneous
  Country: US (occurrence: US)
  Receive Date: 20130214
  Receipt Date: 20130325
  Transmission Date: 20140127
  Serious: Yes (Disabling, Other)
  Sender: FDA-Public Use
  Company Number: US-009507513-1302USA004138

PATIENT
  Sex: Female

DRUGS (3)
  1. PEGINTRON [Suspect]
     Indication: HEPATITIS C
     Dosage: UNK
     Dates: start: 20130201, end: 20130319
  2. RIBAVIRIN [Suspect]
     Indication: HEPATITIS C
     Dosage: UNK
     Route: 048
     Dates: start: 20130201, end: 20130319
  3. VICTRELIS [Suspect]
     Indication: HEPATITIS C
     Dosage: UNK
     Dates: start: 20130301, end: 20130319

REACTIONS (6)
  - Bone marrow failure [Unknown]
  - Fatigue [Unknown]
  - Fatigue [Unknown]
  - Fatigue [Unknown]
  - Asthenia [Unknown]
  - Dizziness postural [Unknown]
